FAERS Safety Report 10218237 (Version 1)
Quarter: 2014Q2

REPORT INFORMATION
  Report Type: Spontaneous
  Country: ES (occurrence: ES)
  Receive Date: 20140605
  Receipt Date: 20140605
  Transmission Date: 20141212
  Serious: Yes (Other)
  Sender: FDA-Public Use
  Company Number: ES-MERCK-1405ESP014776

PATIENT
  Age: 84 Year
  Sex: Male
  Weight: 100 kg

DRUGS (4)
  1. SINEMET PLUS RETARD 25/100 MG COMPRIMIDOS DE LIBERACI?N RETARDADA [Suspect]
     Indication: PARKINSON^S DISEASE
     Dosage: 1 TABLET, TID
     Route: 048
     Dates: start: 20140202
  2. VALSARTAN [Interacting]
     Indication: HYPERTENSION
     Dosage: 160 MG, QD
     Route: 048
     Dates: start: 20101025, end: 20140428
  3. FUROSEMIDE [Interacting]
     Indication: CARDIAC FAILURE CONGESTIVE
     Dosage: 40 MG, QD
     Route: 048
     Dates: start: 20101025
  4. DOXAZOSIN MESYLATE [Interacting]
     Indication: HYPERTENSION
     Dosage: 4 MG, QD
     Route: 048
     Dates: start: 20130109

REACTIONS (2)
  - Fall [Recovered/Resolved]
  - Hypotension [Recovered/Resolved]
